FAERS Safety Report 7354193-7 (Version None)
Quarter: 2011Q1

REPORT INFORMATION
  Report Type: 
  Country: None (occurrence: None)
  Receive Date: 20110316
  Receipt Date: 20110307
  Transmission Date: 20110831
  Serious: Yes (Death, Hospitalization)
  Sender: FDA-Public Use
  Company Number: US-BIOGENIDEC-2011BI008879

PATIENT
  Age: 62 Year
  Sex: Male

DRUGS (2)
  1. AVONEX [Suspect]
     Indication: MULTIPLE SCLEROSIS
     Route: 030
     Dates: start: 20010709, end: 20030929
  2. AVONEX [Suspect]
     Route: 030
     Dates: start: 20031022

REACTIONS (4)
  - CYSTITIS [None]
  - DEATH [None]
  - DECUBITUS ULCER [None]
  - CARDIAC FAILURE CONGESTIVE [None]
